FAERS Safety Report 21723583 (Version 2)
Quarter: 2023Q1

REPORT INFORMATION
  Report Type: Spontaneous
  Country: AR (occurrence: AR)
  Receive Date: 20221213
  Receipt Date: 20230206
  Transmission Date: 20230418
  Serious: Yes (Other)
  Sender: FDA-Public Use
  Company Number: AR-PFIZER INC-PV202200118837

PATIENT
  Age: 46 Year
  Sex: Female

DRUGS (3)
  1. TRAZIMERA [Suspect]
     Active Substance: TRASTUZUMAB-QYYP
     Indication: Breast cancer metastatic
     Dosage: 440 MG, EVERY 3 WEEKS
     Dates: start: 20201120
  2. PERTUZUMAB [Suspect]
     Active Substance: PERTUZUMAB
  3. TAMOXIFEN [Suspect]
     Active Substance: TAMOXIFEN

REACTIONS (3)
  - Brain neoplasm [Not Recovered/Not Resolved]
  - Tooth loss [Unknown]
  - Memory impairment [Unknown]
